FAERS Safety Report 25610172 (Version 2)
Quarter: 2025Q3

REPORT INFORMATION
  Report Type: Report from Study
  Country: EU (occurrence: EU)
  Receive Date: 20250728
  Receipt Date: 20250805
  Transmission Date: 20251021
  Serious: No
  Sender: SANDOZ
  Company Number: EU-SANDOZ-SDZ2025IT053193

PATIENT
  Age: 11 Year
  Sex: Female
  Weight: 56 kg

DRUGS (1)
  1. OMNITROPE [Suspect]
     Active Substance: SOMATROPIN
     Indication: Growth hormone deficiency
     Dosage: 1 MG, QD
     Route: 058
     Dates: start: 20240103

REACTIONS (3)
  - Therapy interrupted [Unknown]
  - Drug dose omission by device [Unknown]
  - Device issue [Unknown]

NARRATIVE: CASE EVENT DATE: 20250720
